FAERS Safety Report 23239377 (Version 1)
Quarter: 2023Q4

REPORT INFORMATION
  Report Type: Spontaneous
  Country: CA (occurrence: None)
  Receive Date: 20231129
  Receipt Date: 20231129
  Transmission Date: 20240110
  Serious: Yes (Other)
  Sender: FDA-Public Use
  Company Number: CA-PFIZER INC-202300352328

PATIENT
  Age: 54 Year
  Sex: Female

DRUGS (2)
  1. METHOTREXATE [Suspect]
     Active Substance: METHOTREXATE
     Indication: Sarcoidosis
     Dates: start: 2014, end: 2015
  2. METHOTREXATE [Suspect]
     Active Substance: METHOTREXATE
     Dates: start: 2014

REACTIONS (7)
  - Cholecystectomy [Unknown]
  - Uveitis [Unknown]
  - Drug ineffective for unapproved indication [Unknown]
  - Product use in unapproved indication [Unknown]
  - Flank pain [Unknown]
  - Skin lesion [Unknown]
  - Granuloma [Unknown]

NARRATIVE: CASE EVENT DATE: 20140101
